FAERS Safety Report 12239159 (Version 2)
Quarter: 2016Q2

REPORT INFORMATION
  Report Type: Spontaneous
  Country: US (occurrence: US)
  Receive Date: 20160405
  Receipt Date: 20160613
  Transmission Date: 20160815
  Serious: Yes (Other)
  Sender: FDA-Public Use
  Company Number: US-TEVA-648152USA

PATIENT
  Age: 20 Year
  Sex: Female

DRUGS (1)
  1. ZECUITY [Suspect]
     Active Substance: SUMATRIPTAN SUCCINATE
     Route: 062
     Dates: start: 201603, end: 201603

REACTIONS (9)
  - Application site exfoliation [Unknown]
  - Skin texture abnormal [Not Recovered/Not Resolved]
  - Application site pruritus [Unknown]
  - Application site pain [Unknown]
  - Petechiae [Unknown]
  - Application site burn [Unknown]
  - Application site erythema [Unknown]
  - Application site warmth [Unknown]
  - Application site rash [Recovered/Resolved]

NARRATIVE: CASE EVENT DATE: 201603
